FAERS Safety Report 9235189 (Version 2)
Quarter: 2014Q1

REPORT INFORMATION
  Report Type: Spontaneous
  Country: FR (occurrence: FR)
  Receive Date: 20130417
  Receipt Date: 20140227
  Transmission Date: 20141002
  Serious: Yes (Life-Threatening, Hospitalization)
  Sender: FDA-Public Use
  Company Number: FR-AMGEN-FRASP2013025664

PATIENT
  Age: 90 Year
  Sex: Male

DRUGS (2)
  1. NPLATE [Suspect]
     Indication: IMMUNE THROMBOCYTOPENIC PURPURA
     Dosage: 140 MUG, QWK
     Route: 042
     Dates: start: 20130211, end: 20130225
  2. IGIVNEX [Concomitant]
     Dosage: 1 G/KG, UNK
     Dates: start: 20130208

REACTIONS (4)
  - Deep vein thrombosis [Unknown]
  - Pulmonary embolism [Unknown]
  - Ischaemic stroke [Not Recovered/Not Resolved]
  - Thrombocytosis [Not Recovered/Not Resolved]
